FAERS Safety Report 19169510 (Version 1)
Quarter: 2021Q2

REPORT INFORMATION
  Report Type: Spontaneous
  Country: US (occurrence: US)
  Receive Date: 20210422
  Receipt Date: 20210422
  Transmission Date: 20210717
  Serious: No
  Sender: FDA-Public Use
  Company Number: US-DERMIRA, INC.-US-2021DER000052

PATIENT
  Age: 55 Year
  Sex: Female
  Weight: 117.91 kg

DRUGS (1)
  1. QBREXZA [Suspect]
     Active Substance: GLYCOPYRRONIUM TOSYLATE
     Indication: HYPERHIDROSIS
     Dosage: UNK, UNK, QD
     Route: 061
     Dates: start: 20210312, end: 20210312

REACTIONS (12)
  - Ageusia [Unknown]
  - Headache [Recovered/Resolved]
  - Urinary hesitation [Recovering/Resolving]
  - Decreased appetite [Recovered/Resolved]
  - Dry throat [Recovering/Resolving]
  - Vision blurred [Not Recovered/Not Resolved]
  - Constipation [Recovered/Resolved]
  - Dry skin [Not Recovered/Not Resolved]
  - Nasal dryness [Not Recovered/Not Resolved]
  - Administration site pain [Recovered/Resolved]
  - Epistaxis [Recovered/Resolved]
  - Vomiting [Recovered/Resolved]

NARRATIVE: CASE EVENT DATE: 20210312
